FAERS Safety Report 4872079-4 (Version None)
Quarter: 2005Q4

REPORT INFORMATION
  Report Type: 
  Country: None (occurrence: None)
  Receive Date: 20051230
  Receipt Date: 20051221
  Transmission Date: 20060501
  Serious: Yes (Other)
  Sender: FDA-Public Use
  Company Number: GBR-2005-0002036

PATIENT
  Age: 94 Year
  Sex: Female

DRUGS (3)
  1. THEOPHYLLINE [Suspect]
     Indication: BRADYCARDIA
     Dosage: SEE IMAGE
     Route: 048
     Dates: start: 20050825
  2. NICORANDIL (NICORANDIL) [Concomitant]
  3. ASPIRIN [Concomitant]

REACTIONS (1)
  - HALLUCINATION [None]
